FAERS Safety Report 20032187 (Version 4)
Quarter: 2021Q4

REPORT INFORMATION
  Report Type: Report from Study
  Country: US (occurrence: US)
  Receive Date: 20211103
  Receipt Date: 20211213
  Transmission Date: 20220303
  Serious: Yes (Death, Hospitalization)
  Sender: FDA-Public Use
  Company Number: US-BRISTOL-MYERS SQUIBB COMPANY-BMS-2021-111097

PATIENT
  Age: 57 Year
  Sex: Female

DRUGS (3)
  1. IPILIMUMAB [Suspect]
     Active Substance: IPILIMUMAB
     Indication: Non-small cell lung cancer
     Dosage: 3 MILLIGRAM/KILOGRAM, Q6WKS, X4 MAX
     Route: 042
     Dates: start: 20200220, end: 20200625
  2. VOPRATELIMAB [Suspect]
     Active Substance: VOPRATELIMAB
     Indication: Non-small cell lung cancer
     Dosage: 0.03 MILLIGRAM/KILOGRAM, Q6WK
     Route: 042
     Dates: start: 20200312, end: 20201119
  3. PEMETREXED DISODIUM [Suspect]
     Active Substance: PEMETREXED DISODIUM
     Indication: Product used for unknown indication
     Dosage: UNK UNK, Q3WK
     Route: 042
     Dates: end: 20210923

REACTIONS (1)
  - Pneumonitis [Fatal]

NARRATIVE: CASE EVENT DATE: 20211003
